FAERS Safety Report 24943533 (Version 2)
Quarter: 2025Q2

REPORT INFORMATION
  Report Type: Spontaneous
  Country: US (occurrence: US)
  Receive Date: 20250207
  Receipt Date: 20250415
  Transmission Date: 20250716
  Serious: No
  Sender: SUNOVION
  Company Number: US-SMPA-2025SPA000900AA

PATIENT

DRUGS (2)
  1. GEMTESA [Suspect]
     Active Substance: VIBEGRON
     Indication: Hypertonic bladder
     Dosage: 75 MG, QD
     Route: 048
     Dates: start: 20250109
  2. GEMTESA [Suspect]
     Active Substance: VIBEGRON
     Indication: Stress urinary incontinence

REACTIONS (5)
  - Joint swelling [Recovering/Resolving]
  - Abdominal distension [Unknown]
  - Urinary incontinence [Unknown]
  - Peripheral swelling [Recovering/Resolving]
  - Product use issue [Unknown]

NARRATIVE: CASE EVENT DATE: 20250120
